FAERS Safety Report 7861511-X (Version None)
Quarter: 2011Q4

REPORT INFORMATION
  Report Type: 
  Country: None (occurrence: None)
  Receive Date: 20111027
  Receipt Date: 20111018
  Transmission Date: 20120403
  Serious: Yes (Hospitalization)
  Sender: FDA-Public Use
  Company Number: US-BAXTER-2011BH033166

PATIENT
  Age: 39 Year
  Sex: Male

DRUGS (3)
  1. DIANEAL [Suspect]
     Indication: PERITONEAL DIALYSIS
     Route: 033
     Dates: start: 20090201
  2. DIANEAL [Suspect]
     Route: 033
     Dates: start: 20090201
  3. DIANEAL [Suspect]
     Route: 033
     Dates: start: 20090201

REACTIONS (3)
  - PULMONARY OEDEMA [None]
  - PERICARDIAL EFFUSION [None]
  - HAEMOPTYSIS [None]
